FAERS Safety Report 22147912 (Version 1)
Quarter: 2023Q1

REPORT INFORMATION
  Report Type: Report from Study
  Country: US (occurrence: None)
  Receive Date: 20230328
  Receipt Date: 20230328
  Transmission Date: 20230418
  Serious: Yes (Other)
  Sender: FDA-Public Use
  Company Number: 2023A069322

PATIENT
  Sex: Female
  Weight: 93 kg

DRUGS (20)
  1. KOSELUGO [Suspect]
     Active Substance: SELUMETINIB
     Indication: Neurofibromatosis
     Route: 048
     Dates: start: 2022
  2. ERYTHROMYCIN [Suspect]
     Active Substance: ERYTHROMYCIN
  3. ALBUTEROL [Concomitant]
     Active Substance: ALBUTEROL
  4. TESSALON [Concomitant]
     Active Substance: BENZONATATE
  5. CETIRIZINE [Concomitant]
     Active Substance: CETIRIZINE HYDROCHLORIDE
  6. CYCLOBENZAPRINE [Concomitant]
     Active Substance: CYCLOBENZAPRINE
  7. CYCLOBENZAPRINE [Concomitant]
     Active Substance: CYCLOBENZAPRINE
  8. ADDERALL XR [Concomitant]
     Active Substance: AMPHETAMINE ASPARTATE\AMPHETAMINE SULFATE\DEXTROAMPHETAMINE SACCHARATE\DEXTROAMPHETAMINE SULFATE
  9. BENTYL [Concomitant]
     Active Substance: DICYCLOMINE HYDROCHLORIDE
  10. BENADRYL [Concomitant]
     Active Substance: DIPHENHYDRAMINE HYDROCHLORIDE
  11. LEXAPRO [Concomitant]
     Active Substance: ESCITALOPRAM OXALATE
  12. FLONASE [Concomitant]
     Active Substance: FLUTICASONE PROPIONATE
  13. NORCO [Concomitant]
     Active Substance: ACETAMINOPHEN\HYDROCODONE BITARTRATE
  14. MOBIC [Concomitant]
     Active Substance: MELOXICAM
  15. SINGULAIR [Concomitant]
     Active Substance: MONTELUKAST SODIUM
  16. NAPROXEN [Concomitant]
     Active Substance: NAPROXEN
  17. ZOFRAN [Concomitant]
     Active Substance: ONDANSETRON HYDROCHLORIDE
  18. TRAZODONE [Concomitant]
     Active Substance: TRAZODONE HYDROCHLORIDE
  19. TRELEGY ELLIPTA [Concomitant]
     Active Substance: FLUTICASONE FUROATE\UMECLIDINIUM BROMIDE\VILANTEROL TRIFENATATE
  20. VENLAFAXINE [Concomitant]
     Active Substance: VENLAFAXINE HYDROCHLORIDE

REACTIONS (3)
  - Neoplasm [Unknown]
  - Drug hypersensitivity [Unknown]
  - Drug ineffective [Unknown]
